FAERS Safety Report 5798528-5 (Version None)
Quarter: 2008Q3

REPORT INFORMATION
  Report Type: 
  Country: None (occurrence: None)
  Receive Date: 20080702
  Receipt Date: 20080626
  Transmission Date: 20090109
  Serious: Yes (Hospitalization)
  Sender: FDA-Public Use
  Company Number: US-MERCK-0806USA08731

PATIENT
  Age: 55 Year
  Sex: Female

DRUGS (4)
  1. FOSAMAX [Suspect]
     Indication: OSTEOPOROSIS
     Route: 048
     Dates: start: 20020101, end: 20070901
  2. BONIVA [Suspect]
     Indication: OSTEOPOROSIS
     Route: 065
     Dates: start: 20070901
  3. CALCIUM (UNSPECIFIED) [Concomitant]
     Route: 065
  4. OSTEO-BI-FLEX [Concomitant]
     Route: 065

REACTIONS (1)
  - FEMUR FRACTURE [None]
